FAERS Safety Report 9296754 (Version 2)
Quarter: 2013Q3

REPORT INFORMATION
  Report Type: Spontaneous
  Country: US (occurrence: US)
  Receive Date: 20130517
  Receipt Date: 20130829
  Transmission Date: 20140515
  Serious: Yes (Death, Hospitalization, Other)
  Sender: FDA-Public Use
  Company Number: US-B.I. PHARMACEUTICALS,INC./RIDGEFIELD-2013-BI-14074BP

PATIENT
  Age: 78 Year
  Sex: Male
  Weight: 67.13 kg

DRUGS (2)
  1. PRADAXA [Suspect]
     Dates: start: 201107, end: 201112
  2. ASPIRIN [Concomitant]

REACTIONS (6)
  - Death [Fatal]
  - Ischaemic stroke [Unknown]
  - Encephalopathy [Unknown]
  - Gastrointestinal haemorrhage [Unknown]
  - Myocardial infarction [Unknown]
  - Rectal haemorrhage [Unknown]
